FAERS Safety Report 7744808-3 (Version None)
Quarter: 2011Q3

REPORT INFORMATION
  Report Type: 
  Country: None (occurrence: None)
  Receive Date: 20110912
  Receipt Date: 20110912
  Transmission Date: 20111222
  Serious: Yes (Other)
  Sender: FDA-Public Use
  Company Number: None

PATIENT
  Age: 15 Year
  Sex: Female
  Weight: 61.688 kg

DRUGS (1)
  1. ISONIAZID [Suspect]

REACTIONS (4)
  - FEELING ABNORMAL [None]
  - ARTHRALGIA [None]
  - PARAESTHESIA [None]
  - RESTLESS LEGS SYNDROME [None]
